FAERS Safety Report 24799869 (Version 1)
Quarter: 2025Q1

REPORT INFORMATION
  Report Type: Other
  Country: RS (occurrence: RS)
  Receive Date: 20250102
  Receipt Date: 20250102
  Transmission Date: 20250409
  Serious: Yes (Death, Life-Threatening, Hospitalization, Other)
  Sender: NUVO PHARMACEUTICALS
  Company Number: RS-Nuvo Pharmaceuticals Inc-2168198

PATIENT
  Age: 39 Year
  Sex: Male

DRUGS (3)
  1. DIAZEPAM [Suspect]
     Active Substance: DIAZEPAM
     Indication: Product used for unknown indication
  2. HALOPERIDOL [Suspect]
     Active Substance: HALOPERIDOL
  3. VALPROIC ACID [Suspect]
     Active Substance: VALPROIC ACID

REACTIONS (12)
  - Loss of consciousness [Fatal]
  - Intentional overdose [Unknown]
  - Toxicity to various agents [Fatal]
  - Hypotension [Fatal]
  - Bradycardia [Fatal]
  - Hypotonia [Fatal]
  - Miosis [Fatal]
  - Hyperglycaemia [Fatal]
  - Pneumonia [Fatal]
  - Coma [Fatal]
  - Cardiac arrest [Fatal]
  - Respiratory failure [Fatal]
